FAERS Safety Report 5407271-3 (Version None)
Quarter: 2007Q3

REPORT INFORMATION
  Report Type: 
  Country: None (occurrence: None)
  Receive Date: 20070807
  Receipt Date: 20070726
  Transmission Date: 20080115
  Serious: Yes (Death)
  Sender: FDA-Public Use
  Company Number: JP-SANOFI-SYNTHELABO-A01200708527

PATIENT
  Age: 52 Year
  Sex: Male
  Weight: 70 kg

DRUGS (6)
  1. CALCIUM GLUCONATE [Concomitant]
     Route: 042
  2. DEXAMETHASONE SODIUM PHOSPHATE [Concomitant]
     Route: 042
  3. FLUOROURACIL [Suspect]
     Dosage: 600 MG/BODY=337.1 MG/M2 BOLUS THEN 3600 MG/BODY=2022.5 MG/M2 CONTINUOUS INFUSION ON DAY 1-2
     Route: 042
     Dates: start: 20070621, end: 20070622
  4. OXALIPLATIN [Suspect]
     Indication: COLON CANCER
     Dosage: 120 MG/BODY=67.4 MG/M2
     Route: 042
     Dates: start: 20070621, end: 20070621
  5. LEUCOVORIN CALCIUM [Suspect]
     Dosage: 250 MG/BODY=140.0 MG/M2
     Route: 042
     Dates: start: 20070621, end: 20070621
  6. MAGNESIUM SULFATE_GLUCOSE [Concomitant]
     Route: 042

REACTIONS (8)
  - HAEMODIALYSIS [None]
  - HYPERGLYCAEMIA [None]
  - KETOACIDOSIS [None]
  - MULTI-ORGAN FAILURE [None]
  - RENAL FAILURE [None]
  - RESPIRATORY FAILURE [None]
  - SEPSIS [None]
  - STOMATITIS [None]
